FAERS Safety Report 16024437 (Version 1)
Quarter: 2019Q1

REPORT INFORMATION
  Report Type: Spontaneous
  Country: CA (occurrence: CA)
  Receive Date: 20190301
  Receipt Date: 20190301
  Transmission Date: 20190418
  Serious: Yes (Other)
  Sender: FDA-Public Use
  Company Number: CA-SA-2019SA058964

PATIENT
  Age: 37 Year
  Sex: Male

DRUGS (3)
  1. CICLOSPORIN [Suspect]
     Active Substance: CYCLOSPORINE
     Indication: IMMUNOSUPPRESSANT DRUG THERAPY
     Route: 048
  2. LEFLUNOMIDE. [Suspect]
     Active Substance: LEFLUNOMIDE
     Indication: TRICHODYSPLASIA SPINULOSA
     Route: 048
  3. MOMETASONE [Concomitant]
     Active Substance: MOMETASONE
     Indication: TRICHODYSPLASIA SPINULOSA
     Route: 065

REACTIONS (3)
  - Liver function test abnormal [Recovered/Resolved]
  - Human polyomavirus infection [Recovered/Resolved]
  - Trichodysplasia spinulosa [Recovered/Resolved]
